FAERS Safety Report 9083493 (Version 1)
Quarter: 2013Q1

REPORT INFORMATION
  Report Type: Report from Study
  Country: US (occurrence: US)
  Receive Date: 20130130
  Receipt Date: 20130130
  Transmission Date: 20140127
  Serious: No
  Sender: FDA-Public Use
  Company Number: US-ABBOTT-12P-163-0952579-00

PATIENT
  Sex: Female
  Weight: 69.01 kg

DRUGS (9)
  1. HUMIRA 40 MG/0.8 ML PEN [Suspect]
     Indication: RHEUMATOID ARTHRITIS
     Dates: start: 20120219, end: 20120527
  2. CLARITIN [Concomitant]
     Indication: SEASONAL ALLERGY
  3. VITAMIN D [Concomitant]
     Indication: VITAMIN SUPPLEMENTATION
  4. VITAMIN B [Concomitant]
     Indication: VITAMIN SUPPLEMENTATION
  5. VITAMIN C [Concomitant]
     Indication: VITAMIN SUPPLEMENTATION
  6. CALCIUM [Concomitant]
     Indication: SUPPLEMENTATION THERAPY
  7. MULTIVITAMIN [Concomitant]
     Indication: VITAMIN SUPPLEMENTATION
  8. FISH OIL [Concomitant]
     Indication: SUPPLEMENTATION THERAPY
  9. ORENCIA [Concomitant]
     Indication: RHEUMATOID ARTHRITIS
     Dates: start: 20120606

REACTIONS (8)
  - Injection site urticaria [Recovered/Resolved]
  - Urticaria [Recovered/Resolved]
  - Rheumatoid arthritis [Not Recovered/Not Resolved]
  - Drug ineffective [Not Recovered/Not Resolved]
  - Gait disturbance [Not Recovered/Not Resolved]
  - Activities of daily living impaired [Not Recovered/Not Resolved]
  - Fatigue [Not Recovered/Not Resolved]
  - Musculoskeletal stiffness [Not Recovered/Not Resolved]
